FAERS Safety Report 5059470-0 (Version None)
Quarter: 2006Q3

REPORT INFORMATION
  Report Type: 
  Country: None (occurrence: None)
  Receive Date: 20060724
  Receipt Date: 20060710
  Transmission Date: 20061208
  Serious: Yes (Other)
  Sender: FDA-Public Use
  Company Number: PHFR2006GB02210

PATIENT
  Age: 38 Year
  Sex: Male

DRUGS (10)
  1. ASPIRIN [Suspect]
     Route: 065
  2. ATENOLOL [Suspect]
     Indication: HYPERTENSION
     Route: 065
  3. ATORVASTATIN CALCIUM [Suspect]
     Indication: HYPERLIPIDAEMIA
     Route: 065
  4. CELLCEPT [Suspect]
     Indication: RENAL TRANSPLANT
     Dosage: 500 MG, BID
     Route: 048
     Dates: start: 20020615, end: 20060315
  5. DOXAZOSIN (NGX) [Suspect]
     Route: 065
  6. ISONIAZID [Suspect]
     Route: 065
  7. LAMIVUDINE [Suspect]
     Indication: HEPATITIS B
     Dosage: UNK, UNK
     Route: 065
  8. PERINDOPRIL [Suspect]
     Indication: HYPERTENSION
     Dosage: UNK, UNK
     Route: 065
  9. PYRIDOXINE HCL [Suspect]
     Dosage: UNK, UNK
     Route: 065
  10. CYCLOSPORINE [Suspect]
     Route: 065

REACTIONS (1)
  - SPERMATOZOA PROGRESSIVE MOTILITY ABNORMAL [None]
